FAERS Safety Report 24575905 (Version 1)
Quarter: 2024Q4

REPORT INFORMATION
  Report Type: Spontaneous
  Country: US (occurrence: None)
  Receive Date: 20241102
  Receipt Date: 20241102
  Transmission Date: 20250114
  Serious: Yes (Disabling)
  Sender: Public
  Company Number: None

PATIENT
  Age: 57 Year
  Sex: Female
  Weight: 45.9 kg

DRUGS (3)
  1. ARESTIN [Suspect]
     Active Substance: MINOCYCLINE HYDROCHLORIDE
     Indication: Gingival bleeding
     Dates: start: 20240910, end: 20240910
  2. ADVIL [Concomitant]
     Active Substance: IBUPROFEN
  3. TYLENOL [Concomitant]
     Active Substance: ACETAMINOPHEN

REACTIONS (9)
  - Chills [None]
  - Heart rate increased [None]
  - Headache [None]
  - Fatigue [None]
  - Decreased appetite [None]
  - Abdominal discomfort [None]
  - Abdominal pain upper [None]
  - Vision blurred [None]
  - Hyperaesthesia teeth [None]

NARRATIVE: CASE EVENT DATE: 20240910
